FAERS Safety Report 5374839-2 (Version None)
Quarter: 2007Q2

REPORT INFORMATION
  Report Type: 
  Country: None (occurrence: None)
  Receive Date: 20070629
  Receipt Date: 20070621
  Transmission Date: 20071010
  Serious: Yes (Hospitalization)
  Sender: FDA-Public Use
  Company Number: B0467415A

PATIENT
  Age: 36 Year
  Sex: Female
  Weight: 32.1 kg

DRUGS (2)
  1. AMOXICILLIN [Suspect]
     Indication: INFECTION PROPHYLAXIS
     Dosage: 250MG THREE TIMES PER DAY
     Route: 048
     Dates: start: 20050614, end: 20050619
  2. LOXOPROFEN SODIUM [Suspect]
     Indication: PAIN
     Dosage: 60MG THREE TIMES PER DAY
     Route: 048
     Dates: start: 20050614, end: 20050619

REACTIONS (9)
  - ALANINE AMINOTRANSFERASE INCREASED [None]
  - ALTERED STATE OF CONSCIOUSNESS [None]
  - ASPARTATE AMINOTRANSFERASE INCREASED [None]
  - BLOOD ALKALINE PHOSPHATASE INCREASED [None]
  - BLOOD LACTATE DEHYDROGENASE INCREASED [None]
  - GAMMA-GLUTAMYLTRANSFERASE INCREASED [None]
  - HEPATIC FUNCTION ABNORMAL [None]
  - HYPOGLYCAEMIA [None]
  - WHITE BLOOD CELL COUNT DECREASED [None]
